FAERS Safety Report 25586578 (Version 1)
Quarter: 2025Q3

REPORT INFORMATION
  Report Type: Spontaneous
  Country: CN (occurrence: CN)
  Receive Date: 20250721
  Receipt Date: 20250721
  Transmission Date: 20251021
  Serious: Yes (Other)
  Sender: COHERUS
  Company Number: CN-SHANGHAI JUNSHI BIOSCIENCES CO., LTD.-CN2025013027

PATIENT

DRUGS (9)
  1. TORIPALIMAB [Suspect]
     Active Substance: TORIPALIMAB
     Indication: Nonkeratinising carcinoma of nasopharynx
     Dosage: 240 MG, Q3W, 2 CYCLES ADMINISTRATION
  2. TORIPALIMAB [Suspect]
     Active Substance: TORIPALIMAB
     Dosage: 240 MG, Q3W, D1
     Route: 041
     Dates: start: 20241022, end: 20241022
  3. TORIPALIMAB [Suspect]
     Active Substance: TORIPALIMAB
     Dosage: 240 MG, Q3W, D1
     Route: 041
     Dates: start: 20241112, end: 20241112
  4. GEMCITABINE HYDROCHLORIDE [Suspect]
     Active Substance: GEMCITABINE HYDROCHLORIDE
     Indication: Nonkeratinising carcinoma of nasopharynx
  5. GEMCITABINE HYDROCHLORIDE [Suspect]
     Active Substance: GEMCITABINE HYDROCHLORIDE
     Dosage: 1.6 G, Q3W, D1 AND D8
     Route: 041
     Dates: start: 20241022, end: 20241029
  6. GEMCITABINE HYDROCHLORIDE [Suspect]
     Active Substance: GEMCITABINE HYDROCHLORIDE
     Dosage: 1.6 G, Q3W, D1 AND D8
     Route: 041
     Dates: start: 20241112, end: 20241119
  7. CISPLATIN [Suspect]
     Active Substance: CISPLATIN
     Indication: Nonkeratinising carcinoma of nasopharynx
  8. CISPLATIN [Suspect]
     Active Substance: CISPLATIN
     Dosage: 130 MG, Q3W
     Route: 041
     Dates: start: 20241022, end: 20241022
  9. CISPLATIN [Suspect]
     Active Substance: CISPLATIN
     Dosage: 130 MG, Q3W, D1
     Route: 041
     Dates: start: 20241112, end: 20241112

REACTIONS (1)
  - Myelosuppression [Recovered/Resolved]

NARRATIVE: CASE EVENT DATE: 20241113
